FAERS Safety Report 12233347 (Version 1)
Quarter: 2016Q2

REPORT INFORMATION
  Report Type: Spontaneous
  Country: US (occurrence: US)
  Receive Date: 20160404
  Receipt Date: 20160404
  Transmission Date: 20160815
  Serious: No
  Sender: FDA-Public Use
  Company Number: US-STRIDES ARCOLAB LIMITED-2016SP000235

PATIENT

DRUGS (4)
  1. IMIQUIMOD. [Suspect]
     Active Substance: IMIQUIMOD
     Indication: METASTATIC MALIGNANT MELANOMA
     Dosage: UNK, QD
     Route: 061
  2. INTERLEUKIN-2 [Suspect]
     Active Substance: ALDESLEUKIN
     Dosage: UNK, 2 TIMES A WEEK
     Route: 026
  3. INTERLEUKIN-2 [Suspect]
     Active Substance: ALDESLEUKIN
     Indication: METASTATIC MALIGNANT MELANOMA
     Dosage: UNK
     Route: 026
  4. TAZAROTENE [Suspect]
     Active Substance: TAZAROTENE
     Indication: METASTATIC MALIGNANT MELANOMA
     Dosage: UNK
     Route: 061

REACTIONS (3)
  - Skin depigmentation [Unknown]
  - Off label use [Unknown]
  - Application site discolouration [Unknown]
